FAERS Safety Report 8484606-9 (Version None)
Quarter: 2012Q3

REPORT INFORMATION
  Report Type: 
  Country: None (occurrence: None)
  Receive Date: 20120703
  Receipt Date: 20120628
  Transmission Date: 20120928
  Serious: No
  Sender: FDA-Public Use
  Company Number: US-BAYER-2012-064370

PATIENT
  Age: 22 Year
  Sex: Female

DRUGS (1)
  1. MIRENA [Suspect]
     Indication: CONTRACEPTION
     Dosage: DAILY DOSE 20 ?G
     Route: 015
     Dates: start: 20120401

REACTIONS (5)
  - DIZZINESS [None]
  - UTERINE CERVICAL PAIN [None]
  - VULVOVAGINAL DISCOMFORT [None]
  - NAUSEA [None]
  - WEIGHT INCREASED [None]
